FAERS Safety Report 9782207 (Version 1)
Quarter: 2013Q4

REPORT INFORMATION
  Report Type: Spontaneous
  Country: US (occurrence: US)
  Receive Date: 20131226
  Receipt Date: 20131226
  Transmission Date: 20140711
  Serious: No
  Sender: FDA-Public Use
  Company Number: US-B.I. PHARMACEUTICALS,INC./RIDGEFIELD-2013-BI-42247BP

PATIENT
  Sex: Female
  Weight: 58 kg

DRUGS (6)
  1. SPIRIVA [Suspect]
     Indication: CHRONIC OBSTRUCTIVE PULMONARY DISEASE
     Dosage: 18 MCG
     Route: 055
     Dates: start: 2012
  2. ASACOL [Concomitant]
     Indication: CROHN^S DISEASE
     Dosage: 400 MG
     Route: 048
     Dates: start: 1998
  3. LISINOPRIL [Concomitant]
     Indication: HYPERTENSION
     Dosage: 20 MG
     Route: 048
     Dates: start: 2012
  4. MECLIZINE [Concomitant]
     Indication: DIZZINESS
     Dosage: 12.5 MG
     Route: 048
     Dates: start: 2010
  5. PRILOSEC [Concomitant]
     Indication: ABDOMINAL DISCOMFORT
     Dosage: 20 MG
     Route: 048
     Dates: start: 1998
  6. IMURAN [Concomitant]
     Indication: CROHN^S DISEASE
     Dosage: 50 MG
     Route: 048
     Dates: start: 1998

REACTIONS (2)
  - Dry mouth [Not Recovered/Not Resolved]
  - Dry eye [Not Recovered/Not Resolved]
